FAERS Safety Report 9418273 (Version 3)
Quarter: 2013Q3

REPORT INFORMATION
  Report Type: Spontaneous
  Country: US (occurrence: US)
  Receive Date: 20130724
  Receipt Date: 20130829
  Transmission Date: 20140515
  Serious: Yes (Disabling, Other)
  Sender: FDA-Public Use
  Company Number: US-009507513-1307USA010466

PATIENT
  Age: 15 Year
  Sex: Female
  Weight: 65.31 kg

DRUGS (2)
  1. NEXPLANON [Suspect]
     Indication: CONTRACEPTION
     Dosage: 68 MG, UNK
     Route: 059
     Dates: start: 20130711, end: 20130712
  2. PROVENTIL [Concomitant]
     Dosage: UNK
     Route: 055
     Dates: start: 20101116

REACTIONS (8)
  - Muscular weakness [Recovered/Resolved]
  - Hypoaesthesia [Recovered/Resolved]
  - Infection [Recovered/Resolved]
  - Paraesthesia [Recovered/Resolved]
  - Implant site reaction [Recovered/Resolved]
  - Device deployment issue [Recovered/Resolved]
  - Wound complication [Recovered/Resolved]
  - Local swelling [Recovered/Resolved]
